FAERS Safety Report 4437671-X (Version None)
Quarter: 2004Q3

REPORT INFORMATION
  Report Type: 
  Country: None (occurrence: None)
  Receive Date: 20040831
  Receipt Date: 20040823
  Transmission Date: 20050211
  Serious: Yes (Other)
  Sender: FDA-Public Use
  Company Number: PHEH2004US09134

PATIENT
  Age: 55 Year
  Sex: Female

DRUGS (5)
  1. VIVELLE [Suspect]
     Indication: HORMONE REPLACEMENT THERAPY
     Dosage: .05 MG, ONCE
     Route: 062
     Dates: start: 20040816, end: 20040816
  2. TEGRETOL [Suspect]
     Indication: CONVULSION
     Dosage: 600MG IN AM;800MG IN PM
     Route: 048
  3. TRANZINE [Concomitant]
     Indication: SLEEP DISORDER
  4. SYNTHROID [Concomitant]
  5. TOPAMAX [Suspect]
     Indication: CONVULSION

REACTIONS (2)
  - CONVULSION [None]
  - WEIGHT INCREASED [None]
